FAERS Safety Report 12284037 (Version 1)
Quarter: 2016Q2

REPORT INFORMATION
  Report Type: Spontaneous
  Country: US (occurrence: US)
  Receive Date: 20160419
  Receipt Date: 20160419
  Transmission Date: 20160815
  Serious: No
  Sender: FDA-Public Use
  Company Number: US-ELI_LILLY_AND_COMPANY-US201603009610

PATIENT
  Sex: Female

DRUGS (2)
  1. HUMALOG [Suspect]
     Active Substance: INSULIN LISPRO
     Indication: TYPE 2 DIABETES MELLITUS
     Dosage: UNK, TID
     Route: 065
     Dates: start: 20160220
  2. LANTUS [Concomitant]
     Active Substance: INSULIN GLARGINE

REACTIONS (2)
  - Muscle spasms [Unknown]
  - Muscle tightness [Not Recovered/Not Resolved]
